FAERS Safety Report 11915854 (Version 3)
Quarter: 2016Q1

REPORT INFORMATION
  Report Type: Spontaneous
  Country: DE (occurrence: DE)
  Receive Date: 20160114
  Receipt Date: 20160203
  Transmission Date: 20160526
  Serious: Yes (Other)
  Sender: FDA-Public Use
  Company Number: DE-ACTAVIS-2015-29147

PATIENT
  Age: 15 Year
  Sex: Female

DRUGS (1)
  1. REPAGLINIDE (UNKNOWN) [Suspect]
     Active Substance: REPAGLINIDE
     Indication: SUICIDE ATTEMPT
     Dosage: 10.5 MG, TOTAL (21 SEPARATE DOSAGES)
     Route: 048
     Dates: start: 20090706

REACTIONS (2)
  - Hypoglycaemia [Recovered/Resolved]
  - Intentional overdose [Unknown]

NARRATIVE: CASE EVENT DATE: 20090707
